FAERS Safety Report 11223146 (Version 2)
Quarter: 2015Q3

REPORT INFORMATION
  Report Type: Spontaneous
  Country: US (occurrence: US)
  Receive Date: 20150626
  Receipt Date: 20150716
  Transmission Date: 20151125
  Serious: Yes (Death, Hospitalization)
  Sender: FDA-Public Use
  Company Number: US-ACTELION-A-US2015-119994

PATIENT
  Age: 46 Year
  Sex: Male

DRUGS (1)
  1. TRACLEER [Suspect]
     Active Substance: BOSENTAN
     Indication: PULMONARY HYPERTENSION
     Dosage: UNK
     Route: 048
     Dates: end: 20150617

REACTIONS (4)
  - Endotracheal intubation [Unknown]
  - Cardiac disorder [Unknown]
  - Dyspnoea [Unknown]
  - Atrial flutter [Fatal]

NARRATIVE: CASE EVENT DATE: 20150617
